FAERS Safety Report 6046823-7 (Version None)
Quarter: 2009Q1

REPORT INFORMATION
  Report Type: 
  Country: None (occurrence: None)
  Receive Date: 20090122
  Receipt Date: 20090116
  Transmission Date: 20090719
  Serious: Yes (Hospitalization)
  Sender: FDA-Public Use
  Company Number: A0764311A

PATIENT
  Age: 64 Year
  Sex: Male
  Weight: 81.8 kg

DRUGS (8)
  1. AVANDIA [Suspect]
     Indication: TYPE 2 DIABETES MELLITUS
     Dosage: 8MG PER DAY
     Route: 048
     Dates: start: 19990101, end: 20060201
  2. ACTOS [Concomitant]
  3. GLUCOPHAGE [Concomitant]
  4. METFORMIN [Concomitant]
  5. GLUCOTROL [Concomitant]
  6. LISINOPRIL [Concomitant]
  7. GLIPIZIDE [Concomitant]
  8. FLOMAX [Concomitant]

REACTIONS (11)
  - ANXIETY [None]
  - CHEST PAIN [None]
  - CORONARY ARTERY BYPASS [None]
  - DEPRESSION [None]
  - DYSPNOEA [None]
  - EMOTIONAL DISORDER [None]
  - FATIGUE [None]
  - FLUID RETENTION [None]
  - HEART INJURY [None]
  - MENTAL DISORDER [None]
  - PAIN [None]
